FAERS Safety Report 17238192 (Version 4)
Quarter: 2021Q4

REPORT INFORMATION
  Report Type: Report from Study
  Country: JP (occurrence: JP)
  Receive Date: 20200106
  Receipt Date: 20211104
  Transmission Date: 20220303
  Serious: Yes (Hospitalization, Other)
  Sender: FDA-Public Use
  Company Number: NVSC2016JP000449

PATIENT
  Age: 11 Year
  Sex: Male
  Weight: 33 kg

DRUGS (56)
  1. ILARIS [Suspect]
     Active Substance: CANAKINUMAB
     Indication: Muckle-Wells syndrome
     Dosage: 64 MG, QD
     Route: 058
     Dates: start: 20140225
  2. ILARIS [Suspect]
     Active Substance: CANAKINUMAB
     Dosage: 128 MG, UNK
     Route: 058
     Dates: start: 20140408
  3. ILARIS [Suspect]
     Active Substance: CANAKINUMAB
     Dosage: 128 MG, UNK
     Route: 058
     Dates: start: 20140602
  4. ILARIS [Suspect]
     Active Substance: CANAKINUMAB
     Dosage: 128 MG, UNK
     Route: 058
     Dates: start: 20140724
  5. ILARIS [Suspect]
     Active Substance: CANAKINUMAB
     Dosage: 300 MG, UNK
     Route: 058
     Dates: start: 20150212
  6. ILARIS [Suspect]
     Active Substance: CANAKINUMAB
     Dosage: 300 MG, UNK
     Route: 058
     Dates: start: 20150312
  7. ILARIS [Suspect]
     Active Substance: CANAKINUMAB
     Dosage: 300 MG, UNK
     Route: 058
     Dates: start: 20150413
  8. ILARIS [Suspect]
     Active Substance: CANAKINUMAB
     Dosage: 300 MG, UNK
     Route: 058
     Dates: start: 20150511
  9. ILARIS [Suspect]
     Active Substance: CANAKINUMAB
     Dosage: 300 MG, UNK
     Route: 058
     Dates: start: 20150615
  10. ILARIS [Suspect]
     Active Substance: CANAKINUMAB
     Dosage: 300 MG, UNK
     Route: 058
     Dates: start: 20150713
  11. ILARIS [Suspect]
     Active Substance: CANAKINUMAB
     Dosage: 300 MG, UNK
     Route: 058
     Dates: start: 20150810
  12. ILARIS [Suspect]
     Active Substance: CANAKINUMAB
     Dosage: 300 MG, UNK
     Route: 058
     Dates: start: 20150907
  13. ILARIS [Suspect]
     Active Substance: CANAKINUMAB
     Dosage: 300 MG, UNK
     Route: 058
     Dates: start: 20151005
  14. ILARIS [Suspect]
     Active Substance: CANAKINUMAB
     Dosage: 300 MG, UNK
     Route: 058
     Dates: start: 20151102
  15. ILARIS [Suspect]
     Active Substance: CANAKINUMAB
     Dosage: 300 MG, UNK
     Route: 058
     Dates: start: 20151130
  16. ILARIS [Suspect]
     Active Substance: CANAKINUMAB
     Dosage: 300 MG, UNK
     Route: 058
     Dates: start: 20151228
  17. ILARIS [Suspect]
     Active Substance: CANAKINUMAB
     Dosage: 300 MG, UNK
     Route: 058
     Dates: start: 20160129
  18. ILARIS [Suspect]
     Active Substance: CANAKINUMAB
     Dosage: 375 MG, UNK
     Route: 058
     Dates: start: 20160222, end: 20161204
  19. ILARIS [Suspect]
     Active Substance: CANAKINUMAB
     Dosage: 300 MG, UNK
     Route: 058
     Dates: start: 20161205
  20. ILARIS [Suspect]
     Active Substance: CANAKINUMAB
     Dosage: 300 MG, 4W
     Route: 058
  21. ILARIS [Suspect]
     Active Substance: CANAKINUMAB
     Dosage: 450 MG
     Route: 058
  22. ILARIS [Suspect]
     Active Substance: CANAKINUMAB
     Dosage: 150 MG
     Route: 058
  23. ILARIS [Suspect]
     Active Substance: CANAKINUMAB
     Dosage: EVERY 8 WEEKS
     Route: 058
     Dates: start: 20200824
  24. NAPROXEN SODIUM [Suspect]
     Active Substance: NAPROXEN SODIUM
     Indication: Muckle-Wells syndrome
     Dosage: 400 MG, UNK
     Route: 048
     Dates: start: 20150511, end: 20160511
  25. IBUPROFEN [Suspect]
     Active Substance: IBUPROFEN
     Indication: Muckle-Wells syndrome
     Dosage: 300 MG, UNK
     Route: 048
     Dates: start: 20131018
  26. IBUPROFEN [Suspect]
     Active Substance: IBUPROFEN
     Indication: Cryopyrin associated periodic syndrome
     Dosage: 900 MG, UNK
     Route: 048
     Dates: start: 20150128, end: 20150510
  27. NEXIUM [Concomitant]
     Active Substance: ESOMEPRAZOLE MAGNESIUM
     Indication: Prophylaxis
     Dosage: 10 MG, UNK
     Route: 048
     Dates: start: 20150128, end: 20150211
  28. NEXIUM [Concomitant]
     Active Substance: ESOMEPRAZOLE MAGNESIUM
     Dosage: 10 MG, UNK
     Route: 048
     Dates: start: 20151228, end: 20160815
  29. GASTER [Concomitant]
     Active Substance: FAMOTIDINE
     Indication: Product used for unknown indication
     Dosage: 10 MG, UNK
     Route: 048
     Dates: start: 20150212, end: 20151227
  30. ALLELOCK [Concomitant]
     Active Substance: OLOPATADINE HYDROCHLORIDE
     Indication: Rhinitis allergic
     Dosage: 10 MG, UNK
     Route: 048
     Dates: start: 20150128
  31. CEFDITOREN PIVOXIL [Concomitant]
     Active Substance: CEFDITOREN PIVOXIL
     Indication: Product used for unknown indication
     Dosage: 300 MG, UNK
     Route: 065
     Dates: start: 20150721, end: 20150728
  32. ALFACALCIDOL [Concomitant]
     Active Substance: ALFACALCIDOL
     Indication: Product used for unknown indication
     Dosage: 0.25 UG, UNK
     Route: 065
     Dates: start: 20150721, end: 20160224
  33. CLARITHROMYCIN [Concomitant]
     Active Substance: CLARITHROMYCIN
     Indication: Product used for unknown indication
     Dosage: 300 MG, UNK
     Route: 065
     Dates: start: 20151102, end: 20151129
  34. CLARITHROMYCIN [Concomitant]
     Active Substance: CLARITHROMYCIN
     Dosage: 200 MG, UNK
     Route: 065
     Dates: start: 20151130, end: 20160221
  35. FERROUS SULFATE [Concomitant]
     Active Substance: FERROUS SULFATE
     Indication: Product used for unknown indication
     Dosage: 105 MG, UNK
     Route: 065
     Dates: start: 20150821, end: 20160224
  36. SINGULAIR [Concomitant]
     Active Substance: MONTELUKAST SODIUM
     Indication: Rhinitis allergic
     Dosage: 5 MG, UNK
     Route: 048
     Dates: start: 20150128
  37. CARBOCYSTEINE [Concomitant]
     Active Substance: CARBOCYSTEINE
     Indication: Rhinitis allergic
     Dosage: 750 MG, UNK
     Route: 048
     Dates: start: 20150128, end: 20150412
  38. CARBOCYSTEINE [Concomitant]
     Active Substance: CARBOCYSTEINE
     Dosage: 500 MG, UNK
     Route: 048
     Dates: start: 20150413
  39. AMBROXOL HYDROCHLORIDE [Concomitant]
     Active Substance: AMBROXOL HYDROCHLORIDE
     Indication: Bronchitis
     Dosage: 45 MG, UNK
     Route: 048
     Dates: start: 20150128, end: 20150212
  40. HUSCODE [Concomitant]
     Active Substance: CHLORPHENIRAMINE MALEATE\DIHYDROCODEINE PHOSPHATE\METHYLEPHEDRINE HYDROCHLORIDE, DL-
     Indication: Bronchitis
     Dosage: 6 DF, UNK
     Route: 048
     Dates: start: 20150128, end: 20150212
  41. PREDONINE [Concomitant]
     Active Substance: PREDNISOLONE
     Indication: Muckle-Wells syndrome
     Dosage: 20 MG, UNK
     Route: 048
     Dates: start: 20150721, end: 20150803
  42. PREDONINE [Concomitant]
     Active Substance: PREDNISOLONE
     Dosage: 15 MG, UNK
     Route: 048
     Dates: start: 20150804, end: 20150821
  43. PREDONINE [Concomitant]
     Active Substance: PREDNISOLONE
     Dosage: 10 MG, UNK
     Route: 048
     Dates: start: 20150822, end: 20150828
  44. PREDONINE [Concomitant]
     Active Substance: PREDNISOLONE
     Dosage: 7.5 MG, UNK
     Route: 048
     Dates: start: 20150829, end: 20150914
  45. PREDONINE [Concomitant]
     Active Substance: PREDNISOLONE
     Dosage: 5 MG, UNK
     Route: 048
     Dates: start: 20150915, end: 20151004
  46. PREDONINE [Concomitant]
     Active Substance: PREDNISOLONE
     Dosage: 2.5 MG, UNK
     Route: 048
     Dates: start: 20151005, end: 20151227
  47. PREDONINE [Concomitant]
     Active Substance: PREDNISOLONE
     Dosage: 2 MG, UNK
     Route: 048
     Dates: start: 20151228, end: 20160130
  48. PREDONINE [Concomitant]
     Active Substance: PREDNISOLONE
     Dosage: 3 MG, UNK
     Route: 048
     Dates: start: 20160201, end: 20160208
  49. PREDONINE [Concomitant]
     Active Substance: PREDNISOLONE
     Dosage: 2 MG, UNK
     Route: 048
     Dates: start: 20160209, end: 20160224
  50. PREDONINE [Concomitant]
     Active Substance: PREDNISOLONE
     Dosage: 10 MG
     Route: 048
  51. PREDONINE [Concomitant]
     Active Substance: PREDNISOLONE
     Dosage: 2.5 MG
     Route: 048
     Dates: start: 20200406, end: 20200824
  52. TEPRENONE [Concomitant]
     Active Substance: TEPRENONE
     Indication: Product used for unknown indication
     Dosage: UNK
     Route: 065
  53. PRANLUKAST [Concomitant]
     Active Substance: PRANLUKAST
     Indication: Product used for unknown indication
     Dosage: UNK
     Route: 065
  54. FEXOFENADINE HYDROCHLORIDE [Concomitant]
     Active Substance: FEXOFENADINE HYDROCHLORIDE
     Indication: Product used for unknown indication
     Dosage: UNK
     Route: 065
  55. HUMIRA [Concomitant]
     Active Substance: ADALIMUMAB
     Indication: Product used for unknown indication
     Dosage: 40 MG
     Route: 065
     Dates: start: 20200406
  56. BUDESONIDE [Concomitant]
     Active Substance: BUDESONIDE
     Indication: Product used for unknown indication
     Dosage: UNK
     Route: 048
     Dates: end: 20200508

REACTIONS (19)
  - Enterocolitis [Not Recovered/Not Resolved]
  - Diarrhoea [Recovering/Resolving]
  - Abdominal pain [Unknown]
  - Gastrointestinal erosion [Recovering/Resolving]
  - Aphthous ulcer [Unknown]
  - Muckle-Wells syndrome [Recovered/Resolved]
  - Pain in extremity [Recovering/Resolving]
  - Inflammation [Recovering/Resolving]
  - Condition aggravated [Recovered/Resolved]
  - Nasopharyngitis [Recovering/Resolving]
  - Oropharyngeal pain [Recovering/Resolving]
  - Headache [Recovering/Resolving]
  - Pyrexia [Recovering/Resolving]
  - Malaise [Recovering/Resolving]
  - Physical deconditioning [Recovered/Resolved]
  - C-reactive protein increased [Not Recovered/Not Resolved]
  - Scoliosis [Not Recovered/Not Resolved]
  - Acne [Unknown]
  - Inappropriate schedule of product administration [Unknown]

NARRATIVE: CASE EVENT DATE: 20150706
